FAERS Safety Report 19897908 (Version 2)
Quarter: 2022Q3

REPORT INFORMATION
  Report Type: Spontaneous
  Country: US (occurrence: US)
  Receive Date: 20210929
  Receipt Date: 20220811
  Transmission Date: 20221027
  Serious: No
  Sender: FDA-Public Use
  Company Number: US-OTSUKA-2021_017874

PATIENT
  Age: 50 Year
  Sex: Female

DRUGS (1)
  1. REXULTI [Suspect]
     Active Substance: BREXPIPRAZOLE
     Indication: Bipolar disorder
     Dosage: 2 MG
     Route: 065

REACTIONS (3)
  - Musculoskeletal stiffness [Unknown]
  - Bradykinesia [Unknown]
  - Product use in unapproved indication [Unknown]
